FAERS Safety Report 19196184 (Version 3)
Quarter: 2021Q3

REPORT INFORMATION
  Report Type: Spontaneous
  Country: GB (occurrence: GB)
  Receive Date: 20210429
  Receipt Date: 20210729
  Transmission Date: 20211014
  Serious: Yes (Other)
  Sender: FDA-Public Use
  Company Number: GB-BRISTOL-MYERS SQUIBB COMPANY-BMS-2021-039246

PATIENT
  Age: 75 Year
  Sex: Male

DRUGS (2)
  1. NIVOLUMAB [Suspect]
     Active Substance: NIVOLUMAB
     Indication: BIPHASIC MESOTHELIOMA
     Dosage: 3 MILLIGRAM/KILOGRAM (160 MG)
     Route: 042
     Dates: start: 20210330, end: 20210413
  2. IPILIMUMAB [Suspect]
     Active Substance: IPILIMUMAB
     Indication: BIPHASIC MESOTHELIOMA
     Dosage: 1 MILLIGRAM/KILOGRAM (53 MG)
     Route: 065
     Dates: start: 20210330

REACTIONS (3)
  - Back pain [Recovered/Resolved]
  - Intentional product use issue [Unknown]
  - Flushing [Recovered/Resolved]

NARRATIVE: CASE EVENT DATE: 20210413
